FAERS Safety Report 9872716 (Version 1)
Quarter: 2014Q1

REPORT INFORMATION
  Report Type: Other
  Country: US (occurrence: US)
  Receive Date: 20140206
  Receipt Date: 20140206
  Transmission Date: 20141002
  Serious: No
  Sender: FDA-Public Use
  Company Number: US-ACORDA-ACO_100469_2013

PATIENT
  Sex: Male

DRUGS (2)
  1. AMPYRA [Suspect]
     Indication: PRODUCT USED FOR UNKNOWN INDICATION
     Dosage: 10 MG, BID
     Route: 048
     Dates: start: 2013, end: 20131004
  2. AMPYRA [Suspect]
     Dosage: UNK
     Route: 065
     Dates: start: 2010, end: 2010

REACTIONS (4)
  - Muscular weakness [Recovering/Resolving]
  - Multiple sclerosis [Recovering/Resolving]
  - Adverse drug reaction [Unknown]
  - Burning sensation [Recovering/Resolving]
